FAERS Safety Report 4838474-4 (Version None)
Quarter: 2005Q4

REPORT INFORMATION
  Report Type: 
  Country: None (occurrence: None)
  Receive Date: 20051129
  Receipt Date: 20051024
  Transmission Date: 20060501
  Serious: Yes (Death)
  Sender: FDA-Public Use
  Company Number: GB-ABBOTT-05P-167-0315360-00

PATIENT
  Sex: Male
  Weight: 90 kg

DRUGS (19)
  1. HUMIRA [Suspect]
     Indication: RHEUMATOID ARTHRITIS
     Route: 058
     Dates: start: 20050207, end: 20051020
  2. HUMIRA [Suspect]
     Route: 058
     Dates: start: 20050207, end: 20051020
  3. PREDNISOLONE [Concomitant]
     Indication: RHEUMATOID ARTHRITIS
     Route: 048
  4. METHOTREXATE [Concomitant]
     Indication: RHEUMATOID ARTHRITIS
     Route: 048
     Dates: start: 20030730, end: 20051020
  5. SULFASALAZINE [Concomitant]
     Indication: RHEUMATOID ARTHRITIS
     Route: 048
     Dates: start: 20010809, end: 20051020
  6. SIMVASTATIN [Concomitant]
     Indication: CARDIAC DISORDER
     Route: 048
  7. SIMVASTATIN [Concomitant]
     Indication: PROPHYLAXIS
  8. MELOXICAM [Concomitant]
     Indication: RHEUMATOID ARTHRITIS
     Route: 048
  9. FOLIC ACID [Concomitant]
     Indication: VITAMIN SUPPLEMENTATION
     Route: 048
     Dates: start: 20030730, end: 20051020
  10. FUROSEMIDE [Concomitant]
     Indication: CARDIAC FAILURE
     Route: 048
  11. ISOSORBIDE [Concomitant]
     Indication: CARDIAC FAILURE
     Route: 048
  12. ASPIRIN [Concomitant]
     Indication: CARDIAC FAILURE
     Route: 048
  13. TAMSULOSIN [Concomitant]
     Indication: URINARY RETENTION
     Route: 048
  14. CAPTOPRIL [Concomitant]
     Indication: CARDIAC DISORDER
     Route: 048
  15. BISOPROLOL [Concomitant]
     Indication: CARDIAC DISORDER
     Route: 048
  16. LANSOPRAZOLE [Concomitant]
     Indication: PROPHYLAXIS AGAINST GASTROINTESTINAL ULCER
     Route: 048
  17. B12 [Concomitant]
     Indication: ANAEMIA
     Route: 030
  18. OXYGEN [Concomitant]
     Indication: INTERSTITIAL LUNG DISEASE
  19. RISEDRONATE SODIUM [Concomitant]
     Indication: OSTEOPOROSIS
     Route: 048

REACTIONS (6)
  - CHEST DISCOMFORT [None]
  - CHEST PAIN [None]
  - DYSPNOEA [None]
  - HYPERHIDROSIS [None]
  - SKIN DISCOLOURATION [None]
  - VENTRICULAR HYPERTROPHY [None]
